FAERS Safety Report 5446174-5 (Version None)
Quarter: 2007Q3

REPORT INFORMATION
  Report Type: 
  Country: None (occurrence: None)
  Receive Date: 20070731
  Receipt Date: 20060925
  Transmission Date: 20080115
  Serious: Yes (Other)
  Sender: FDA-Public Use
  Company Number: US-2006-028127

PATIENT
  Age: 44 Year
  Sex: Female
  Weight: 68 kg

DRUGS (1)
  1. MAGNEVIST INJECTION(GADOPENTETATE DIMEGLUMINE) INJECTION [Suspect]
     Indication: NUCLEAR MAGNETIC RESONANCE IMAGING BRAIN
     Dosage: 15 ML, 1 DOSE, INTRAVENOUS
     Route: 042
     Dates: start: 20060925, end: 20060925

REACTIONS (8)
  - CHOKING SENSATION [None]
  - DYSPNOEA [None]
  - EYE SWELLING [None]
  - NASAL CONGESTION [None]
  - PRURITUS [None]
  - SNEEZING [None]
  - URTICARIA [None]
  - VOMITING [None]
